FAERS Safety Report 8276371-5 (Version None)
Quarter: 2012Q2

REPORT INFORMATION
  Report Type: 
  Country: None (occurrence: None)
  Receive Date: 20120412
  Receipt Date: 20120403
  Transmission Date: 20120825
  Serious: Yes (Hospitalization)
  Sender: FDA-Public Use
  Company Number: US-JNJFOC-20120208799

PATIENT
  Sex: Male
  Weight: 59.42 kg

DRUGS (4)
  1. BACTRIM [Concomitant]
     Indication: CYSTITIS
     Route: 065
  2. ZYTIGA [Suspect]
     Route: 048
     Dates: start: 20120214, end: 20120301
  3. CARDIZEM [Concomitant]
     Indication: ILL-DEFINED DISORDER
     Route: 048
  4. ZYTIGA [Suspect]
     Indication: PROSTATE CANCER
     Route: 048
     Dates: start: 20120323, end: 20120324

REACTIONS (13)
  - APPETITE DISORDER [None]
  - DECREASED INTEREST [None]
  - LOWER RESPIRATORY TRACT INFECTION [None]
  - CYSTITIS [None]
  - MALAISE [None]
  - FATIGUE [None]
  - HAEMOGLOBIN DECREASED [None]
  - WRONG TECHNIQUE IN DRUG USAGE PROCESS [None]
  - DECREASED APPETITE [None]
  - ASTHENIA [None]
  - OESOPHAGEAL PAIN [None]
  - DYSPNOEA [None]
  - INSOMNIA [None]
